FAERS Safety Report 5479572-4 (Version None)
Quarter: 2007Q3

REPORT INFORMATION
  Report Type: 
  Country: None (occurrence: None)
  Receive Date: 20070906
  Receipt Date: 20061107
  Transmission Date: 20080115
  Serious: Yes (Other)
  Sender: FDA-Public Use
  Company Number: HQWYE804108NOV06

PATIENT
  Age: 41 Year
  Sex: Female
  Weight: 47.67 kg

DRUGS (1)
  1. ADVIL [Suspect]
     Indication: HEADACHE
     Dosage: 2 LIQUI-GELS ONE TIME, ORAL
     Route: 048
     Dates: start: 20060904, end: 20060904

REACTIONS (2)
  - HYPERSENSITIVITY [None]
  - URTICARIA [None]
